FAERS Safety Report 15804332 (Version 5)
Quarter: 2022Q2

REPORT INFORMATION
  Report Type: Report from Study
  Country: FR (occurrence: FR)
  Receive Date: 20190109
  Receipt Date: 20220527
  Transmission Date: 20220720
  Serious: Yes (Disabling, Other)
  Sender: FDA-Public Use
  Company Number: FR-SHIRE-FR201900367

PATIENT
  Sex: Female

DRUGS (12)
  1. TEDUGLUTIDE [Suspect]
     Active Substance: TEDUGLUTIDE
     Indication: Short-bowel syndrome
     Dosage: 2 MILLIGRAM, QD
     Route: 042
     Dates: start: 20180522
  2. TEDUGLUTIDE [Suspect]
     Active Substance: TEDUGLUTIDE
     Indication: Short-bowel syndrome
     Dosage: 2 MILLIGRAM, QD
     Route: 042
     Dates: start: 20180522
  3. TEDUGLUTIDE [Suspect]
     Active Substance: TEDUGLUTIDE
     Indication: Short-bowel syndrome
     Dosage: 2 MILLIGRAM, QD
     Route: 042
     Dates: start: 20180522
  4. TEDUGLUTIDE [Suspect]
     Active Substance: TEDUGLUTIDE
     Indication: Short-bowel syndrome
     Dosage: 2 MILLIGRAM, QD
     Route: 042
     Dates: start: 20180522
  5. ESOMEPRAZOLE [Concomitant]
     Active Substance: ESOMEPRAZOLE
     Indication: Prophylaxis against gastrointestinal ulcer
  6. KARDEGIC [Concomitant]
     Active Substance: ASPIRIN DL-LYSINE
     Indication: Cardiovascular event prophylaxis
  7. WARFARIN SODIUM [Concomitant]
     Active Substance: WARFARIN SODIUM
     Indication: Anticoagulant therapy
  8. VITAMIN B12 [Concomitant]
     Active Substance: CYANOCOBALAMIN
     Indication: Prophylaxis
  9. RENUTRYL BOOSTER [Concomitant]
     Indication: Supplementation therapy
     Dosage: 1 INTERNATIONAL UNIT, QD
     Route: 048
     Dates: start: 20181010
  10. FUROSEMIDE [Concomitant]
     Active Substance: FUROSEMIDE
     Indication: Oedema
     Dosage: 10 MILLIGRAM, QD
     Route: 048
     Dates: start: 20181205, end: 201901
  11. FLAGYL [Concomitant]
     Active Substance: METRONIDAZOLE\METRONIDAZOLE HYDROCHLORIDE
     Indication: Colitis
     Dosage: 500 MILLIGRAM, TID
     Route: 065
     Dates: start: 201909, end: 201909
  12. CEFTRIAXONE SODIUM [Concomitant]
     Active Substance: CEFTRIAXONE SODIUM
     Indication: Colitis
     Dosage: 2 GRAM
     Route: 065
     Dates: start: 201909, end: 201909

REACTIONS (5)
  - Diarrhoea [Recovered/Resolved]
  - Oedema [Recovered/Resolved]
  - Abdominal pain upper [Recovered/Resolved]
  - Constipation [Recovered/Resolved]
  - Crystalluria [Recovered/Resolved]

NARRATIVE: CASE EVENT DATE: 20181109
